FAERS Safety Report 5507462-7 (Version None)
Quarter: 2007Q4

REPORT INFORMATION
  Report Type: 
  Country: None (occurrence: None)
  Receive Date: 20071102
  Receipt Date: 20071018
  Transmission Date: 20080405
  Serious: Yes (Other)
  Sender: FDA-Public Use
  Company Number: 163065ISR

PATIENT
  Age: 64 Year
  Sex: Female

DRUGS (3)
  1. TICLOPIDINE [Suspect]
     Indication: ISCHAEMIC STROKE
     Dosage: 500 MG (250 MG, 2 IN 1 D), ORAL
     Route: 048
     Dates: start: 20071009, end: 20071014
  2. TICLOPIDINE [Suspect]
     Indication: PROPHYLAXIS
     Dosage: 500 MG (250 MG, 2 IN 1 D), ORAL
     Route: 048
     Dates: start: 20071009, end: 20071014
  3. ACETYLSALICYLIC ACID SRT [Concomitant]

REACTIONS (3)
  - BRONCHOSTENOSIS [None]
  - DERMATITIS ALLERGIC [None]
  - EYELID OEDEMA [None]
